FAERS Safety Report 14898856 (Version 3)
Quarter: 2018Q2

REPORT INFORMATION
  Report Type: Report from Study
  Country: FR (occurrence: FR)
  Receive Date: 20180515
  Receipt Date: 20180615
  Transmission Date: 20180711
  Serious: Yes (Death, Other)
  Sender: FDA-Public Use
  Company Number: FR-JAZZ-2018-FR-007582

PATIENT
  Age: 64 Year
  Sex: Male
  Weight: 71 kg

DRUGS (1)
  1. DEFITELIO [Suspect]
     Active Substance: DEFIBROTIDE SODIUM
     Indication: VENOOCCLUSIVE DISEASE
     Dosage: 40 MG/KG, QD
     Route: 042
     Dates: start: 20160203, end: 20160220

REACTIONS (6)
  - Jugular vein thrombosis [Unknown]
  - Condition aggravated [Unknown]
  - Acute graft versus host disease [Unknown]
  - Haemodynamic instability [Fatal]
  - Lactic acidosis [Fatal]
  - Sepsis [Unknown]

NARRATIVE: CASE EVENT DATE: 20160204
